FAERS Safety Report 24040265 (Version 1)
Quarter: 2024Q3

REPORT INFORMATION
  Report Type: Spontaneous
  Country: US (occurrence: None)
  Receive Date: 20240701
  Receipt Date: 20240701
  Transmission Date: 20241017
  Serious: Yes (Death, Hospitalization)
  Sender: Public
  Company Number: None

PATIENT
  Age: 65 Year
  Sex: Female

DRUGS (13)
  1. OPSUMIT [Suspect]
     Active Substance: MACITENTAN
     Indication: Pulmonary arterial hypertension
     Dosage: FREQUENCY : DAILY;?
     Route: 048
     Dates: start: 20230301, end: 20240422
  2. OPSUMIT [Suspect]
     Active Substance: MACITENTAN
     Indication: Heritable pulmonary arterial hypertension
  3. SILDENAFIL [Concomitant]
     Active Substance: SILDENAFIL
  4. VELETRI [Concomitant]
     Active Substance: EPOPROSTENOL
  5. NIFEDIPINE [Concomitant]
     Active Substance: NIFEDIPINE
  6. PANTOPRAZOLE [Concomitant]
     Active Substance: PANTOPRAZOLE
  7. MYCOPHENOLIC ACID [Concomitant]
     Active Substance: MYCOPHENOLIC ACID
  8. FUROSEMIDE [Concomitant]
     Active Substance: FUROSEMIDE
  9. POTASSIUM CHLORIDE [Concomitant]
     Active Substance: POTASSIUM CHLORIDE
  10. DIGOXIN [Concomitant]
     Active Substance: DIGOXIN
  11. CEVIMELINE [Concomitant]
     Active Substance: CEVIMELINE
  12. METOCLOPRAMIDE [Concomitant]
     Active Substance: METOCLOPRAMIDE
  13. LEVOTHYROXINE [Concomitant]
     Active Substance: LEVOTHYROXINE\LEVOTHYROXINE SODIUM

REACTIONS (14)
  - Syncope [None]
  - Dyspnoea [None]
  - Acute respiratory failure [None]
  - Cardiac failure congestive [None]
  - Pulmonary hypertension [None]
  - Hypotension [None]
  - Therapy interrupted [None]
  - Tachycardia [None]
  - Unresponsive to stimuli [None]
  - Pulse absent [None]
  - Left ventricular failure [None]
  - Metabolic acidosis [None]
  - Lactic acidosis [None]
  - Viral infection [None]

NARRATIVE: CASE EVENT DATE: 20240422
